FAERS Safety Report 12675915 (Version 1)
Quarter: 2016Q3

REPORT INFORMATION
  Report Type: Spontaneous
  Country: AR (occurrence: AR)
  Receive Date: 20160823
  Receipt Date: 20160823
  Transmission Date: 20161109
  Serious: Yes (Other)
  Sender: FDA-Public Use
  Company Number: AR-BAYER-2016-163469

PATIENT
  Age: 49 Year
  Sex: Female

DRUGS (11)
  1. ISORBIDE [Concomitant]
     Active Substance: ISOSORBIDE
     Dosage: UNK
  2. METFORMINE [Concomitant]
     Active Substance: METFORMIN HYDROCHLORIDE
     Indication: CARDIOVASCULAR DISORDER
  3. CLOPIDOGREL [Interacting]
     Active Substance: CLOPIDOGREL BISULFATE
     Indication: MYOCARDIAL ISCHAEMIA
     Dosage: 75 MG, QD
     Route: 048
     Dates: start: 20151227, end: 20151227
  4. ROSUVASTATIN. [Concomitant]
     Active Substance: ROSUVASTATIN
  5. SPIRONOLACTONE. [Concomitant]
     Active Substance: SPIRONOLACTONE
     Dosage: UNK
  6. CARVEDILOL. [Concomitant]
     Active Substance: CARVEDILOL
  7. VALSARTAN. [Concomitant]
     Active Substance: VALSARTAN
     Dosage: UNK
  8. METFORMINE [Concomitant]
     Active Substance: METFORMIN HYDROCHLORIDE
     Indication: MYOCARDIAL ISCHAEMIA
  9. IVABRADINE [Concomitant]
     Active Substance: IVABRADINE
  10. ACETYLSALICYLIC ACID (} 100 MG) [Suspect]
     Active Substance: ASPIRIN
     Indication: CARDIOVASCULAR DISORDER
     Dosage: 100 MG, QD
     Route: 048
     Dates: start: 20061212, end: 20151227
  11. ACETYLSALICYLIC ACID (} 100 MG) [Interacting]
     Active Substance: ASPIRIN
     Indication: MYOCARDIAL ISCHAEMIA

REACTIONS (5)
  - Haemorrhagic anaemia [None]
  - Drug administration error [None]
  - Vaginal haemorrhage [None]
  - Labelled drug-drug interaction medication error [None]
  - Acute myocardial infarction [Recovered/Resolved]
